FAERS Safety Report 5485778-0 (Version None)
Quarter: 2007Q4

REPORT INFORMATION
  Report Type: 
  Country: None (occurrence: None)
  Receive Date: 20071015
  Receipt Date: 20071005
  Transmission Date: 20080405
  Serious: Yes (Hospitalization)
  Sender: FDA-Public Use
  Company Number: US-AMGEN-QUU246831

PATIENT
  Sex: Female

DRUGS (2)
  1. ENBREL [Suspect]
     Indication: PSORIATIC ARTHROPATHY
     Dates: start: 20040701
  2. ENBREL [Suspect]
     Indication: PSORIASIS

REACTIONS (2)
  - DRUG INEFFECTIVE [None]
  - OSTEOARTHRITIS [None]
